FAERS Safety Report 22224531 (Version 1)
Quarter: 2023Q2

REPORT INFORMATION
  Report Type: Spontaneous
  Country: US (occurrence: None)
  Receive Date: 20230417
  Receipt Date: 20230417
  Transmission Date: 20230721
  Serious: Yes (Hospitalization)
  Sender: FDA-Public Use
  Company Number: None

PATIENT
  Age: 89 Year
  Sex: Male

DRUGS (2)
  1. ARANESP [Suspect]
     Active Substance: DARBEPOETIN ALFA
     Indication: Anaemia
     Dosage: OTHER FREQUENCY : WEEKLY;?
     Route: 058
  2. ARANESP [Suspect]
     Active Substance: DARBEPOETIN ALFA
     Indication: Chronic kidney disease

REACTIONS (2)
  - Confusional state [None]
  - Aphasia [None]
